FAERS Safety Report 9198544 (Version 3)
Quarter: 2013Q4

REPORT INFORMATION
  Report Type: Spontaneous
  Country: JP (occurrence: JP)
  Receive Date: 20130329
  Receipt Date: 20131003
  Transmission Date: 20140711
  Serious: Yes (Other)
  Sender: FDA-Public Use
  Company Number: JP-ELI_LILLY_AND_COMPANY-JP201303007007

PATIENT
  Age: 65 Year
  Sex: Female

DRUGS (1)
  1. FORTEO [Suspect]
     Dosage: UNK
     Route: 058

REACTIONS (8)
  - Fall [Recovered/Resolved]
  - Fracture [Unknown]
  - Injection site erythema [Unknown]
  - Injection site bruising [Unknown]
  - Regurgitation [Unknown]
  - Blood pressure increased [Unknown]
  - Injection site pain [Unknown]
  - Malaise [Unknown]
